FAERS Safety Report 21066717 (Version 2)
Quarter: 2022Q3

REPORT INFORMATION
  Report Type: Other
  Country: US (occurrence: None)
  Receive Date: 20220711
  Receipt Date: 20220728
  Transmission Date: 20221027
  Serious: No
  Sender: FDA-Public Use
  Company Number: US-ROCHE-3133162

PATIENT
  Age: 63 Year
  Sex: Female
  Weight: 90.800 kg

DRUGS (4)
  1. OCREVUS [Suspect]
     Active Substance: OCRELIZUMAB
     Indication: Multiple sclerosis
     Dosage: FIRST HALF DOSE AND SECOND HALF DOSE ;ONGOING: NO
     Route: 042
     Dates: start: 202012, end: 20210618
  2. OCREVUS [Suspect]
     Active Substance: OCRELIZUMAB
     Dosage: DAY 0 AND DAY 14
     Route: 042
  3. OXYBUTYNIN [Concomitant]
     Active Substance: OXYBUTYNIN
  4. OMEPRAZOLE [Concomitant]
     Active Substance: OMEPRAZOLE

REACTIONS (1)
  - COVID-19 [Not Recovered/Not Resolved]

NARRATIVE: CASE EVENT DATE: 20220622
